FAERS Safety Report 12721537 (Version 1)
Quarter: 2016Q3

REPORT INFORMATION
  Report Type: Other
  Country: TW (occurrence: TW)
  Receive Date: 20160907
  Receipt Date: 20160907
  Transmission Date: 20161109
  Serious: Yes (Death, Hospitalization, Other)
  Sender: FDA-Public Use
  Company Number: TW-UNITED THERAPEUTICS-UNT-2014-006442

PATIENT
  Age: 66 Year
  Sex: Female
  Weight: 47 kg

DRUGS (2)
  1. REMODULIN [Suspect]
     Active Substance: TREPROSTINIL
     Indication: PULMONARY ARTERIAL HYPERTENSION
     Dosage: 0.030 ?G/KG, CONTINUING AT PUMP RATE 1.4 U/HR
     Route: 058
     Dates: start: 20140811
  2. VENTAVIE [Concomitant]
     Indication: PRODUCT USED FOR UNKNOWN INDICATION

REACTIONS (6)
  - Oliguria [Unknown]
  - Right ventricular failure [Fatal]
  - Pancreatitis [Unknown]
  - Hypotension [Unknown]
  - Dyspnoea [Unknown]
  - Generalised oedema [Unknown]

NARRATIVE: CASE EVENT DATE: 2014
